FAERS Safety Report 8025294-5 (Version None)
Quarter: 2012Q1

REPORT INFORMATION
  Report Type: 
  Country: None (occurrence: None)
  Receive Date: 20120105
  Receipt Date: 20120104
  Transmission Date: 20120608
  Serious: Yes (Hospitalization)
  Sender: FDA-Public Use
  Company Number: US-B.I. PHARMACEUTICALS,INC./RIDGEFIELD-2011-BP-27919BP

PATIENT
  Sex: Female
  Weight: 101.15 kg

DRUGS (10)
  1. ALBUTEROL [Concomitant]
  2. MULTI-VITAMINS [Concomitant]
  3. BENICAR HCT [Concomitant]
  4. TRAMADOL HCL [Concomitant]
  5. DILTIAZEM [Concomitant]
  6. PRADAXA [Suspect]
     Indication: ATRIAL FIBRILLATION
     Dosage: 150 MG
     Route: 048
     Dates: start: 20110817, end: 20110826
  7. TRILIPIX [Concomitant]
  8. COMBIVENT [Concomitant]
  9. FLOVENT [Concomitant]
  10. CRESTOR [Concomitant]

REACTIONS (1)
  - HAEMORRHOIDAL HAEMORRHAGE [None]
